FAERS Safety Report 10340011 (Version 1)
Quarter: 2014Q3

REPORT INFORMATION
  Report Type: Spontaneous
  Country: FR (occurrence: None)
  Receive Date: 20140722
  Receipt Date: 20140722
  Transmission Date: 20150326
  Serious: Yes (Other)
  Sender: FDA-Public Use
  Company Number: AUR-APL-2014-07721

PATIENT
  Age: 23 Year
  Sex: Male

DRUGS (8)
  1. FOSCARNET [Suspect]
     Active Substance: FOSCARNET
     Indication: ANTIRETROVIRAL THERAPY
     Route: 042
  2. DIDANOSINE. [Concomitant]
     Active Substance: DIDANOSINE
  3. FOSCARNET [Suspect]
     Active Substance: FOSCARNET
     Indication: SALVAGE THERAPY
     Route: 042
  4. ZIDOVUDINE. [Suspect]
     Active Substance: ZIDOVUDINE
     Indication: ANTIRETROVIRAL THERAPY
     Dosage: 300 MG, TWO TIMES A DAY PER OS, ORAL
     Route: 048
  5. RILPIVIRINE [Concomitant]
     Active Substance: RILPIVIRINE
  6. ZIDOVUDINE. [Suspect]
     Active Substance: ZIDOVUDINE
     Indication: SALVAGE THERAPY
     Dosage: 300 MG, TWO TIMES A DAY PER OS, ORAL
     Route: 048
  7. DOLUTEGRAVIR [Concomitant]
     Active Substance: DOLUTEGRAVIR
  8. ABACAVIR [Concomitant]
     Active Substance: ABACAVIR

REACTIONS (2)
  - Nephropathy toxic [None]
  - Pyrexia [None]
